FAERS Safety Report 6380619-1 (Version None)
Quarter: 2009Q3

REPORT INFORMATION
  Report Type: 
  Country: None (occurrence: None)
  Receive Date: 20090923
  Receipt Date: 20090908
  Transmission Date: 20100115
  Serious: Yes (Other)
  Sender: FDA-Public Use
  Company Number: 2009SP002210

PATIENT
  Age: 56 Year
  Sex: Female

DRUGS (3)
  1. ALVESCO [Suspect]
     Indication: ASTHMA
     Dosage: 200 UG; BID; INHALATION, 200 UG; QD; INHALATION
     Route: 055
     Dates: start: 20090626, end: 20090706
  2. ALVESCO [Suspect]
     Indication: ASTHMA
     Dosage: 200 UG; BID; INHALATION, 200 UG; QD; INHALATION
     Route: 055
     Dates: start: 20090725, end: 20090731
  3. ALBUTEROL [Concomitant]

REACTIONS (4)
  - DYSGEUSIA [None]
  - HALLUCINATION [None]
  - OROPHARYNGEAL PAIN [None]
  - RESPIRATORY DISORDER [None]
